FAERS Safety Report 5248763-X (Version None)
Quarter: 2007Q1

REPORT INFORMATION
  Report Type: 
  Country: None (occurrence: None)
  Receive Date: 20070228
  Receipt Date: 20060322
  Transmission Date: 20070707
  Serious: No
  Sender: FDA-Public Use
  Company Number: US-GLAXOSMITHKLINE-A0589439A

PATIENT
  Age: 50 Year
  Sex: Female

DRUGS (5)
  1. VALTREX [Suspect]
     Dosage: 500MG PER DAY
     Route: 048
     Dates: start: 20050901
  2. GLUCOSAMINE [Suspect]
     Route: 065
     Dates: start: 20051101
  3. WELLBUTRIN SR [Concomitant]
  4. DESYREL [Concomitant]
  5. ZOCOR [Concomitant]

REACTIONS (3)
  - HYPERVENTILATION [None]
  - PARAESTHESIA [None]
  - SOMATOFORM DISORDER [None]
